FAERS Safety Report 18619528 (Version 1)
Quarter: 2020Q4

REPORT INFORMATION
  Report Type: Spontaneous
  Country: IT (occurrence: IT)
  Receive Date: 20201215
  Receipt Date: 20201215
  Transmission Date: 20210114
  Serious: Yes (Death)
  Sender: FDA-Public Use
  Company Number: IT-INSMED, INC.-E2B_00000362

PATIENT
  Age: 62 Year
  Sex: Male

DRUGS (7)
  1. CONGESCOR [Concomitant]
     Active Substance: BISOPROLOL
     Indication: PRODUCT USED FOR UNKNOWN INDICATION
  2. VANCOMYCIN PFIZER [Suspect]
     Active Substance: VANCOMYCIN HYDROCHLORIDE
     Indication: RELAPSING FEVER
     Dates: start: 20180524, end: 20180626
  3. CANCIDAS [Suspect]
     Active Substance: CASPOFUNGIN ACETATE
     Indication: RELAPSING FEVER
     Dates: start: 20180626, end: 20180629
  4. MERREM [Suspect]
     Active Substance: MEROPENEM
     Indication: RELAPSING FEVER
     Dates: start: 20180524, end: 20180626
  5. AMIKACIN. [Suspect]
     Active Substance: AMIKACIN
     Indication: RELAPSING FEVER
     Dates: start: 20180524, end: 20180626
  6. TAZOCIN [Suspect]
     Active Substance: PIPERACILLIN SODIUM\TAZOBACTAM SODIUM
     Indication: RELAPSING FEVER
     Dates: start: 20180524, end: 20180626
  7. LUVION [Concomitant]
     Indication: PRODUCT USED FOR UNKNOWN INDICATION

REACTIONS (1)
  - Toxic epidermal necrolysis [Fatal]

NARRATIVE: CASE EVENT DATE: 20180629
